FAERS Safety Report 21720860 (Version 1)
Quarter: 2022Q4

REPORT INFORMATION
  Report Type: Spontaneous
  Country: US (occurrence: US)
  Receive Date: 20221213
  Receipt Date: 20221213
  Transmission Date: 20230113
  Serious: Yes (Other)
  Sender: FDA-Public Use
  Company Number: US-LUPIN PHARMACEUTICALS INC.-2022-14275

PATIENT
  Age: 18 Year

DRUGS (1)
  1. NORETHINDRONE [Suspect]
     Active Substance: NORETHINDRONE
     Indication: Gender dysphoria
     Dosage: UNK
     Route: 065

REACTIONS (2)
  - Metaplasia [Unknown]
  - Prostatic disorder [Unknown]
